FAERS Safety Report 4796515-7 (Version None)
Quarter: 2005Q4

REPORT INFORMATION
  Report Type: 
  Country: None (occurrence: None)
  Receive Date: 20051013
  Receipt Date: 20051006
  Transmission Date: 20060501
  Serious: Yes (Other)
  Sender: FDA-Public Use
  Company Number: 200518975GDDC

PATIENT
  Age: 50 Year
  Sex: Female

DRUGS (1)
  1. DERMATOP [Suspect]
     Route: 061
     Dates: start: 20020101, end: 20040101

REACTIONS (4)
  - GLAUCOMA [None]
  - MYOPIA [None]
  - SKIN DISORDER [None]
  - VISUAL ACUITY REDUCED [None]
